FAERS Safety Report 5218816-0 (Version None)
Quarter: 2007Q1

REPORT INFORMATION
  Report Type: 
  Country: None (occurrence: None)
  Receive Date: 20070122
  Receipt Date: 20070122
  Transmission Date: 20070707
  Serious: Yes (Hospitalization)
  Sender: FDA-Public Use
  Company Number: None

PATIENT
  Age: 62 Year
  Sex: Male
  Weight: 57.7 kg

DRUGS (1)
  1. ASPIRIN [Suspect]
     Dosage: 325MG  DAILY  PO  (BUYS OTC)
     Route: 048

REACTIONS (6)
  - ARTHRALGIA [None]
  - DYSPNOEA [None]
  - FALL [None]
  - FATIGUE [None]
  - JOINT INJURY [None]
  - MELAENA [None]
